FAERS Safety Report 7647322-9 (Version None)
Quarter: 2011Q3

REPORT INFORMATION
  Report Type: 
  Country: None (occurrence: None)
  Receive Date: 20110801
  Receipt Date: 20110721
  Transmission Date: 20111222
  Serious: Yes (Other)
  Sender: FDA-Public Use
  Company Number: ES-GLAXOSMITHKLINE-B0730628A

PATIENT
  Age: 49 Year
  Sex: Male
  Weight: 90 kg

DRUGS (1)
  1. ALLI [Suspect]
     Indication: WEIGHT DECREASED
     Dosage: 180MG PER DAY
     Route: 048
     Dates: start: 20110601, end: 20110601

REACTIONS (5)
  - DRY MOUTH [None]
  - SYNCOPE [None]
  - PRODUCT QUALITY ISSUE [None]
  - NAUSEA [None]
  - PALPITATIONS [None]
